FAERS Safety Report 4582499-3 (Version None)
Quarter: 2005Q1

REPORT INFORMATION
  Report Type: 
  Country: None (occurrence: None)
  Receive Date: 20050215
  Receipt Date: 20050203
  Transmission Date: 20050727
  Serious: Yes (Death)
  Sender: FDA-Public Use
  Company Number: US-JNJFOC-20041200407

PATIENT
  Sex: Male

DRUGS (6)
  1. RISPERDAL [Suspect]
     Indication: ANGER
     Route: 049
  2. RISPERDAL [Suspect]
     Indication: DEMENTIA
     Route: 049
  3. LIPITOR [Concomitant]
     Route: 049
  4. MICARDIS [Concomitant]
     Route: 049
  5. ACETYLSALICYLIC ACID [Concomitant]
     Route: 049
  6. PLAVIX [Concomitant]
     Route: 049

REACTIONS (1)
  - MYOCARDIAL INFARCTION [None]
